FAERS Safety Report 8346789-0 (Version None)
Quarter: 2012Q2

REPORT INFORMATION
  Report Type: 
  Country: None (occurrence: None)
  Receive Date: 20120509
  Receipt Date: 20100517
  Transmission Date: 20120825
  Serious: No
  Sender: FDA-Public Use
  Company Number: US-TEVA-2010002782

PATIENT
  Sex: Female
  Weight: 83.99 kg

DRUGS (3)
  1. TREANDA [Suspect]
     Indication: LYMPHOMA
     Route: 042
     Dates: start: 20100429
  2. WARFARIN SODIUM [Concomitant]
     Route: 048
  3. RITUXAN [Suspect]
     Indication: LYMPHOMA
     Route: 042
     Dates: start: 20100430

REACTIONS (12)
  - VOMITING [None]
  - CONSTIPATION [None]
  - HEADACHE [None]
  - WEIGHT DECREASED [None]
  - BALANCE DISORDER [None]
  - TACHYCARDIA [None]
  - NAUSEA [None]
  - DYSGEUSIA [None]
  - CONJUNCTIVITIS [None]
  - INTERNATIONAL NORMALISED RATIO INCREASED [None]
  - PAIN [None]
  - HYPOAESTHESIA [None]
